FAERS Safety Report 15151315 (Version 1)
Quarter: 2018Q3

REPORT INFORMATION
  Report Type: Spontaneous
  Country: AT (occurrence: AT)
  Receive Date: 20180716
  Receipt Date: 20180716
  Transmission Date: 20181010
  Serious: Yes (Other)
  Sender: FDA-Public Use
  Company Number: PHHY2018AT039401

PATIENT
  Age: 57 Year
  Sex: Female

DRUGS (6)
  1. ZYKADIA [Suspect]
     Active Substance: CERITINIB
     Indication: PRODUCT USED FOR UNKNOWN INDICATION
     Dosage: 600 MG, QD
     Route: 065
     Dates: start: 201610
  2. ZYKADIA [Suspect]
     Active Substance: CERITINIB
     Dosage: 300 MG, QD
     Route: 065
  3. ZYKADIA [Suspect]
     Active Substance: CERITINIB
     Dosage: 450 MG, QD
     Route: 065
  4. ALECTINIB. [Concomitant]
     Active Substance: ALECTINIB
     Indication: PRODUCT USED FOR UNKNOWN INDICATION
     Dosage: UNK
     Route: 065
  5. CRIZOTINIB [Concomitant]
     Active Substance: CRIZOTINIB
     Indication: PRODUCT USED FOR UNKNOWN INDICATION
     Dosage: 250 MG, BID
     Route: 065
     Dates: start: 201412
  6. CRIZOTINIB [Concomitant]
     Active Substance: CRIZOTINIB
     Dosage: 200 MG, BID
     Route: 065
     Dates: start: 201507

REACTIONS (4)
  - Blood creatinine increased [Unknown]
  - Fatigue [Unknown]
  - Glomerular filtration rate decreased [Recovering/Resolving]
  - Diarrhoea [Recovering/Resolving]
